FAERS Safety Report 6175029-6 (Version None)
Quarter: 2009Q2

REPORT INFORMATION
  Report Type: 
  Country: None (occurrence: None)
  Receive Date: 20090430
  Receipt Date: 20090427
  Transmission Date: 20091009
  Serious: Yes (Hospitalization, Other)
  Sender: FDA-Public Use
  Company Number: PHHY2009CA15962

PATIENT
  Age: 6 Year
  Sex: Male

DRUGS (12)
  1. CYCLOSPORINE [Suspect]
     Indication: STEM CELL TRANSPLANT
     Dosage: UNK
  2. CYCLOSPORINE [Suspect]
     Indication: PROPHYLAXIS AGAINST GRAFT VERSUS HOST DISEASE
     Dosage: 65 MG/M2, Q12H
  3. CYCLOSPORINE [Suspect]
     Dosage: 10 MG/KG/DAY
  4. CYCLOSPORINE [Suspect]
     Dosage: 38.2 MG/KG/DAY
     Route: 048
  5. CYCLOSPORINE [Suspect]
  6. METHYLPREDNISOLONE 4MG TAB [Concomitant]
     Indication: PROPHYLAXIS AGAINST GRAFT VERSUS HOST DISEASE
     Dosage: UNK
  7. NIFEDIPINE [Concomitant]
     Indication: HYPERTENSION
     Dosage: UNK
  8. AMLODIPINE [Concomitant]
     Indication: HYPERTENSION
     Dosage: UNK
  9. BUSULFAN [Concomitant]
     Dosage: UNK
  10. FLUDARABINE PHOSPHATE [Concomitant]
     Dosage: UNK
  11. THYMOGLOBULIN [Concomitant]
     Dosage: UNK
  12. MYCOPHENOLATE MOFETIL [Concomitant]
     Indication: PROPHYLAXIS AGAINST GRAFT VERSUS HOST DISEASE
     Dosage: UNK

REACTIONS (7)
  - BONE MARROW OEDEMA [None]
  - HYPERTENSION [None]
  - LEUKAEMIA RECURRENT [None]
  - PAIN IN EXTREMITY [None]
  - POST TRANSPLANT DISTAL LIMB SYNDROME [None]
  - SCREAMING [None]
  - STEM CELL TRANSPLANT [None]
